FAERS Safety Report 24245489 (Version 1)
Quarter: 2024Q3

REPORT INFORMATION
  Report Type: Spontaneous
  Country: FR (occurrence: FR)
  Receive Date: 20240824
  Receipt Date: 20240824
  Transmission Date: 20241017
  Serious: Yes (Death, Life-Threatening)
  Sender: TEVA
  Company Number: None

PATIENT
  Age: 33 Year
  Sex: Female

DRUGS (5)
  1. GABAPENTIN [Suspect]
     Active Substance: GABAPENTIN
     Indication: Pain
     Dosage: GRADUAL INCREASE IN DOSAGE,GABAPENTINE
     Route: 048
     Dates: start: 20240618, end: 20240716
  2. TAZOBACTAM [Suspect]
     Active Substance: TAZOBACTAM
     Indication: Staphylococcal infection
     Route: 042
     Dates: start: 20240702, end: 20240716
  3. OCREVUS [Suspect]
     Active Substance: OCRELIZUMAB
     Indication: Multiple sclerosis
     Route: 042
     Dates: start: 20211029, end: 20240429
  4. AMITRIPTYLINE [Suspect]
     Active Substance: AMITRIPTYLINE
     Indication: Pain
     Route: 048
     Dates: start: 20240710, end: 20240716
  5. PIPERACILLIN SODIUM [Suspect]
     Active Substance: PIPERACILLIN SODIUM
     Indication: Staphylococcal infection
     Dosage: PIPERACILLINE BASE
     Route: 042
     Dates: start: 20240702, end: 20240716

REACTIONS (2)
  - Hepatic cytolysis [Fatal]
  - Agranulocytosis [Not Recovered/Not Resolved]

NARRATIVE: CASE EVENT DATE: 20240716
